FAERS Safety Report 6392573-7 (Version None)
Quarter: 2009Q4

REPORT INFORMATION
  Report Type: 
  Country: None (occurrence: None)
  Receive Date: 20091007
  Receipt Date: 20090729
  Transmission Date: 20100525
  Serious: No
  Sender: FDA-Public Use
  Company Number: US-ALLERGAN-0908493US

PATIENT
  Age: 56 Year
  Sex: Female
  Weight: 90.703 kg

DRUGS (4)
  1. LATISSE [Suspect]
     Indication: GROWTH OF EYELASHES
     Dosage: UNK, QD
     Dates: start: 20090521
  2. PRINIVIL [Concomitant]
     Indication: HYPERTENSION
     Dosage: 20 MG, QD
  3. HYDROCHLOROTHIAZIDE [Concomitant]
     Indication: HYPERTENSION
     Dosage: 25 MG, QD
  4. PROTONIX [Concomitant]
     Indication: GASTROOESOPHAGEAL REFLUX DISEASE
     Dosage: 40 MG, QD

REACTIONS (1)
  - MADAROSIS [None]
